FAERS Safety Report 7208911-9 (Version None)
Quarter: 2011Q1

REPORT INFORMATION
  Report Type: 
  Country: None (occurrence: None)
  Receive Date: 20110104
  Receipt Date: 20101223
  Transmission Date: 20110831
  Serious: Yes (Disabling, Other)
  Sender: FDA-Public Use
  Company Number: PHHY2010IT39941

PATIENT
  Sex: Female

DRUGS (6)
  1. GLUCOPHAGE [Concomitant]
  2. EXJADE [Suspect]
     Indication: IRON OVERLOAD
  3. EXJADE [Suspect]
     Indication: HAEMOSIDEROSIS
     Dosage: 2 G DAILY
     Route: 048
     Dates: start: 20060601, end: 20100611
  4. PILOCARPINE [Concomitant]
  5. INSULIN [Concomitant]
     Route: 058
  6. TIMOPTOL [Concomitant]

REACTIONS (2)
  - MYALGIA [None]
  - MUSCULAR WEAKNESS [None]
